FAERS Safety Report 7387536-9 (Version None)
Quarter: 2011Q1

REPORT INFORMATION
  Report Type: 
  Country: None (occurrence: None)
  Receive Date: 20110331
  Receipt Date: 20110323
  Transmission Date: 20110831
  Serious: Yes (Other)
  Sender: FDA-Public Use
  Company Number: JP-PFIZER INC-2011063718

PATIENT
  Age: 84 Year
  Sex: Female

DRUGS (4)
  1. METHYLPREDNISOLONE SODIUM SUCCINATE [Suspect]
     Indication: PEMPHIGUS
     Dosage: 500MG/DAY
     Route: 041
     Dates: start: 20080910, end: 20080912
  2. PREDNISOLONE [Concomitant]
     Indication: PEMPHIGUS
     Dosage: UNK
     Route: 048
     Dates: start: 20080101
  3. PREDNISOLONE [Concomitant]
     Dosage: UNK
  4. PREDNISOLONE [Concomitant]
     Dosage: UNK
     Dates: start: 20080101

REACTIONS (4)
  - DISSEMINATED INTRAVASCULAR COAGULATION [None]
  - PULMONARY ARTERY THROMBOSIS [None]
  - VENOUS THROMBOSIS [None]
  - SEPSIS [None]
